FAERS Safety Report 17715213 (Version 2)
Quarter: 2020Q2

REPORT INFORMATION
  Report Type: Spontaneous
  Country: BR (occurrence: BR)
  Receive Date: 20200427
  Receipt Date: 20200609
  Transmission Date: 20200714
  Serious: Yes (Other)
  Sender: FDA-Public Use
  Company Number: BR-JNJFOC-20200431576

PATIENT
  Age: 79 Year
  Sex: Female
  Weight: 58 kg

DRUGS (10)
  1. SIMVASTATIN. [Concomitant]
     Active Substance: SIMVASTATIN
  2. LOSARTAN. [Concomitant]
     Active Substance: LOSARTAN
  3. INSULIN [Concomitant]
     Active Substance: INSULIN NOS
  4. ACETYLSALICYLIC ACID [Concomitant]
     Active Substance: ASPIRIN
  5. CHLORTALIDONE [Concomitant]
     Active Substance: CHLORTHALIDONE
  6. ATENOLOL. [Concomitant]
     Active Substance: ATENOLOL
  7. SIMPONI [Suspect]
     Active Substance: GOLIMUMAB
     Indication: PRODUCT USED FOR UNKNOWN INDICATION
     Route: 058
  8. AMLODIPINE                         /00972402/ [Concomitant]
     Active Substance: AMLODIPINE BESYLATE
  9. METFORMIN [Concomitant]
     Active Substance: METFORMIN HYDROCHLORIDE
  10. NPH                                /00030513/ [Concomitant]

REACTIONS (5)
  - Product dose omission [Unknown]
  - Cardiac pacemaker insertion [Unknown]
  - Gait disturbance [Unknown]
  - Complication associated with device [Unknown]
  - Pain [Not Recovered/Not Resolved]

NARRATIVE: CASE EVENT DATE: 201909
